FAERS Safety Report 8636679 (Version 2)
Quarter: 2012Q4

REPORT INFORMATION
  Report Type: 
  Country: CA (occurrence: CA)
  Receive Date: 20120626
  Receipt Date: 20120828
  Transmission Date: 20130627
  Serious: Yes (Hospitalization)
  Sender: FDA-Public Use
  Company Number: CA-ELI_LILLY_AND_COMPANY-CA201206006539

PATIENT
  Age: 69 Year
  Sex: Female
  Weight: 97.4 kg

DRUGS (22)
  1. FORTEO [Suspect]
     Indication: OSTEOPOROSIS
     Dosage: 20 ug, qd
     Route: 058
     Dates: start: 20101130
  2. CRESTOR [Concomitant]
     Dosage: 10 mg, qd
  3. SINGULAIR [Concomitant]
     Dosage: 10 mg, qd
  4. PANTOPRAZOLE [Concomitant]
     Dosage: 40 mg, qd
  5. ASAPHEN [Concomitant]
     Dosage: 80 mg, qd
  6. MELOXICAM [Concomitant]
     Dosage: 7.5 mg, qd
  7. EFFEXOR [Concomitant]
     Dosage: 150 mg, qd
  8. EFFEXOR [Concomitant]
     Dosage: 75 mg, qd
  9. EFFEXOR [Concomitant]
     Dosage: 37.5 mg, qd
  10. ORPHENADRINE [Concomitant]
     Dosage: 100 mg, prn
  11. HYDROMORPHONE [Concomitant]
     Dosage: 4 mg, prn
  12. LYRICA [Concomitant]
     Dosage: 150 mg, qd
  13. QUETIAPINE [Concomitant]
     Dosage: 100 mg, qd
  14. SYNTHROID [Concomitant]
     Dosage: 1 mg, qd
  15. PREDNISONE [Concomitant]
     Dosage: 5 mg, qd
  16. PREDNISONE [Concomitant]
     Dosage: 30 mg, qd
     Route: 048
  17. AMLODIPINE [Concomitant]
     Dosage: 10 mg, qd
  18. COVERSYL [Concomitant]
     Dosage: 4 mg, qd
  19. CENTRUM                            /00554501/ [Concomitant]
     Dosage: UNK
  20. PSYLLIUM [Concomitant]
  21. D-TABS [Concomitant]
     Dosage: 10000 IU, weekly (1/W)
  22. OXYGEN [Concomitant]
     Dosage: UNK

REACTIONS (2)
  - Asthma [Recovering/Resolving]
  - Bone density decreased [Not Recovered/Not Resolved]
